FAERS Safety Report 21331530 (Version 5)
Quarter: 2023Q1

REPORT INFORMATION
  Report Type: Report from Study
  Country: US (occurrence: US)
  Receive Date: 20220914
  Receipt Date: 20230130
  Transmission Date: 20230418
  Serious: Yes (Life-Threatening, Hospitalization)
  Sender: FDA-Public Use
  Company Number: US-ARGENX-2022-ARGX-US001210

PATIENT

DRUGS (1)
  1. VYVGART [Suspect]
     Active Substance: EFGARTIGIMOD ALFA-FCAB
     Indication: Myasthenia gravis
     Dosage: 1200 MG
     Route: 042
     Dates: start: 20220712

REACTIONS (12)
  - Respiratory failure [Not Recovered/Not Resolved]
  - Hospitalisation [Unknown]
  - Headache [Recovering/Resolving]
  - Nasopharyngitis [Recovering/Resolving]
  - Condition aggravated [Recovering/Resolving]
  - Dyspnoea [Recovering/Resolving]
  - Myasthenia gravis [Not Recovered/Not Resolved]
  - Ligament rupture [Unknown]
  - Nephrolithiasis [Unknown]
  - Diarrhoea [Recovering/Resolving]
  - Nausea [Recovering/Resolving]
  - Sinusitis [Recovering/Resolving]

NARRATIVE: CASE EVENT DATE: 20220713
